FAERS Safety Report 19621867 (Version 3)
Quarter: 2023Q1

REPORT INFORMATION
  Report Type: Spontaneous
  Country: US (occurrence: US)
  Receive Date: 20210728
  Receipt Date: 20230310
  Transmission Date: 20230418
  Serious: Yes (Other)
  Sender: FDA-Public Use
  Company Number: NVSC2021US159873

PATIENT
  Age: 85 Year
  Sex: Female
  Weight: 47 kg

DRUGS (11)
  1. TASIGNA [Suspect]
     Active Substance: NILOTINIB
     Indication: Breast cancer
     Dosage: 600 MG (2 DOSES 300 MG IN MORNING AND 300 MG IN NIGHT)
     Route: 065
  2. TASIGNA [Suspect]
     Active Substance: NILOTINIB
     Indication: Chronic myeloid leukaemia
  3. BOSUTINIB [Suspect]
     Active Substance: BOSUTINIB
     Indication: Chronic myeloid leukaemia
     Dosage: 400 MG, QD
     Route: 065
     Dates: start: 202104
  4. BOSUTINIB [Suspect]
     Active Substance: BOSUTINIB
     Dosage: 300 MG, QD
     Route: 065
     Dates: start: 20210416
  5. ELIQUIS [Suspect]
     Active Substance: APIXABAN
     Indication: Anticoagulant therapy
     Dosage: 2.5 MG, BID
     Route: 065
     Dates: start: 202210
  6. LATANOPROST [Suspect]
     Active Substance: LATANOPROST
     Indication: Hypertension
     Dosage: 0.005 %, QD (BOTH EYES)
     Route: 065
     Dates: start: 200510
  7. LATANOPROST [Suspect]
     Active Substance: LATANOPROST
     Indication: Glaucoma
  8. PRAVASTATIN [Concomitant]
     Active Substance: PRAVASTATIN
     Indication: Product used for unknown indication
     Dosage: 20 MG, QD
     Route: 065
  9. LEVOTHYROXINE SODIUM [Concomitant]
     Active Substance: LEVOTHYROXINE SODIUM
     Indication: Product used for unknown indication
     Dosage: 0.05 MG, QD
     Route: 065
  10. VITAMIN D3 [Concomitant]
     Active Substance: CHOLECALCIFEROL
     Indication: Product used for unknown indication
     Dosage: 1000 IU, QD (25 MCG)
     Route: 065
  11. VITAMIN B12 [Concomitant]
     Active Substance: CYANOCOBALAMIN
     Indication: Product used for unknown indication
     Dosage: 1000 MCG, QD
     Route: 065

REACTIONS (1)
  - Cerebrovascular accident [Unknown]

NARRATIVE: CASE EVENT DATE: 20210416
